FAERS Safety Report 17663079 (Version 3)
Quarter: 2020Q2

REPORT INFORMATION
  Report Type: Spontaneous
  Country: US (occurrence: US)
  Receive Date: 20200413
  Receipt Date: 20200623
  Transmission Date: 20200713
  Serious: No
  Sender: FDA-Public Use
  Company Number: US-009507513-2004USA000756

PATIENT
  Sex: Male

DRUGS (1)
  1. DULERA [Suspect]
     Active Substance: FORMOTEROL FUMARATE DIHYDRATE\MOMETASONE FUROATE
     Indication: ASTHMA
     Dosage: 2 PUFFS DAILY
     Route: 055
     Dates: start: 2016

REACTIONS (6)
  - No adverse event [Unknown]
  - Product quality issue [Unknown]
  - Incorrect dose administered [Unknown]
  - Inappropriate schedule of product administration [Unknown]
  - Wrong technique in product usage process [Unknown]
  - Poor quality device used [Unknown]

NARRATIVE: CASE EVENT DATE: 2016
